FAERS Safety Report 17596423 (Version 1)
Quarter: 2020Q1

REPORT INFORMATION
  Report Type: Spontaneous
  Country: DK (occurrence: DK)
  Receive Date: 20200330
  Receipt Date: 20200330
  Transmission Date: 20200409
  Serious: Yes (Hospitalization)
  Sender: FDA-Public Use
  Company Number: DK-TEVA-2020-DK-1212372

PATIENT
  Age: 82 Year
  Sex: Female

DRUGS (11)
  1. CALCIUM OG D-VITAMIN [Concomitant]
     Indication: VITAMIN SUPPLEMENTATION
     Dosage: STRENGTH: 30 MICROGRAMS + 250 MG.
     Route: 048
     Dates: start: 20191119
  2. TRAMADOL. [Concomitant]
     Active Substance: TRAMADOL
     Indication: BACK PAIN
     Dosage: STRENGTH: 50 MG.
     Route: 048
     Dates: start: 20130201
  3. AMLODIPINE [Concomitant]
     Active Substance: AMLODIPINE BESYLATE
     Indication: CARDIAC DISORDER
     Dosage: STRENGTH: 5 MG.
     Route: 048
     Dates: start: 20191122
  4. ROSUVASTATIN. [Concomitant]
     Active Substance: ROSUVASTATIN
     Indication: HYPERCHOLESTEROLAEMIA
     Dosage: STRENGTH: 20 MG.
     Route: 048
     Dates: start: 20150119, end: 20200305
  5. LOSARTANKALIUM/HYDROCHLORTHIAZID ^TEVA^ [Suspect]
     Active Substance: HYDROCHLOROTHIAZIDE\LOSARTAN POTASSIUM
     Indication: HYPERTENSION
     Dosage: STRENGTH: 100 + 25 MG.
     Route: 048
     Dates: end: 20200224
  6. CIRCADIN [Concomitant]
     Active Substance: MELATONIN
     Indication: INSOMNIA
     Dosage: STRENGTH: 2 MG.
     Route: 048
     Dates: start: 20141006
  7. MEMANTINE. [Concomitant]
     Active Substance: MEMANTINE
     Indication: DEMENTIA ALZHEIMER^S TYPE
     Dosage: STRENGTH: 20 MG.
     Route: 048
     Dates: start: 20200121
  8. DONEPEZIL. [Concomitant]
     Active Substance: DONEPEZIL
     Indication: DEMENTIA ALZHEIMER^S TYPE
     Dosage: STRENGTH: 10 MG.
     Route: 048
     Dates: start: 20170713
  9. CETIRIZINE [Concomitant]
     Active Substance: CETIRIZINE HYDROCHLORIDE
     Indication: SEASONAL ALLERGY
     Dosage: STRENGTH: 10 MG.
     Route: 048
     Dates: start: 20160111
  10. NITROFURANTOIN ^DAK^ [Concomitant]
     Active Substance: NITROFURANTOIN
     Indication: URINARY TRACT INFECTION
     Dosage: STRENGTH: 50 MG.
     Route: 048
     Dates: start: 20191120
  11. PARACETAMOL [Concomitant]
     Active Substance: ACETAMINOPHEN
     Indication: PAIN
     Dosage: STRENGTH: 665 MG.
     Route: 048
     Dates: start: 20181213

REACTIONS (2)
  - Hypokalaemia [Recovered/Resolved]
  - Dehydration [Recovered/Resolved]

NARRATIVE: CASE EVENT DATE: 20200224
